FAERS Safety Report 11903488 (Version 9)
Quarter: 2017Q3

REPORT INFORMATION
  Report Type: Report from Study
  Country: DE (occurrence: DE)
  Receive Date: 20160110
  Receipt Date: 20170918
  Transmission Date: 20171127
  Serious: Yes (Life-Threatening, Hospitalization, Other)
  Sender: FDA-Public Use
  Company Number: PHHY2015DE067001

PATIENT
  Age: 12 Year
  Sex: Female
  Weight: 59.59 kg

DRUGS (1)
  1. VOTUBIA [Suspect]
     Active Substance: EVEROLIMUS
     Indication: TUBEROUS SCLEROSIS
     Dosage: 10 MG, UNK
     Route: 048
     Dates: start: 20120127

REACTIONS (16)
  - Iron deficiency [Not Recovered/Not Resolved]
  - Goitre [Recovered/Resolved with Sequelae]
  - Hyperlipidaemia [Not Recovered/Not Resolved]
  - Anaemia [Recovered/Resolved]
  - Abdominal pain upper [Not Recovered/Not Resolved]
  - Papillary thyroid cancer [Recovered/Resolved with Sequelae]
  - Nausea [Not Recovered/Not Resolved]
  - Thrombocytopenia [Recovered/Resolved]
  - Metastases to lymph nodes [Recovered/Resolved with Sequelae]
  - Thrombocytopenia [Recovered/Resolved]
  - Gastritis [Not Recovered/Not Resolved]
  - Anaemia [Recovered/Resolved]
  - Ovarian cyst [Recovered/Resolved]
  - Anaemia [Recovered/Resolved]
  - Leukopenia [Recovered/Resolved]
  - Thrombocytopenia [Recovered/Resolved]

NARRATIVE: CASE EVENT DATE: 20131105
